FAERS Safety Report 24969222 (Version 1)
Quarter: 2025Q1

REPORT INFORMATION
  Report Type: Spontaneous
  Country: US (occurrence: US)
  Receive Date: 20250214
  Receipt Date: 20250214
  Transmission Date: 20250409
  Serious: No
  Sender: ZYDUS PHARM
  Company Number: US-CADILA HEALTHCARE LIMITED-US-ZYDUS-116151

PATIENT

DRUGS (1)
  1. POTASSIUM CITRATE [Suspect]
     Active Substance: POTASSIUM CITRATE
     Indication: Product used for unknown indication
     Route: 065

REACTIONS (3)
  - Abdominal discomfort [Recovered/Resolved]
  - Diarrhoea [Recovered/Resolved]
  - Product residue present [Unknown]

NARRATIVE: CASE EVENT DATE: 20241101
